FAERS Safety Report 21687319 (Version 2)
Quarter: 2022Q4

REPORT INFORMATION
  Report Type: Spontaneous
  Country: JP (occurrence: JP)
  Receive Date: 20221206
  Receipt Date: 20221226
  Transmission Date: 20230113
  Serious: Yes (Other)
  Sender: FDA-Public Use
  Company Number: None

PATIENT

DRUGS (1)
  1. MEPOLIZUMAB [Suspect]
     Active Substance: MEPOLIZUMAB
     Indication: Asthma
     Dosage: 100 MG EVERY 4 WEEKS

REACTIONS (2)
  - Raynaud^s phenomenon [Not Recovered/Not Resolved]
  - Scleroderma [Unknown]

NARRATIVE: CASE EVENT DATE: 20220301
